FAERS Safety Report 21765642 (Version 3)
Quarter: 2023Q1

REPORT INFORMATION
  Report Type: Spontaneous
  Country: US (occurrence: US)
  Receive Date: 20221222
  Receipt Date: 20230112
  Transmission Date: 20230418
  Serious: Yes (Other)
  Sender: FDA-Public Use
  Company Number: US-ENDO PHARMACEUTICALS INC-2022-006673

PATIENT
  Sex: Male
  Weight: 72.562 kg

DRUGS (4)
  1. TESTOPEL [Suspect]
     Active Substance: TESTOSTERONE
     Indication: Blood testosterone decreased
     Dosage: UNK UNKNOWN, UNKNOWN (FIRST DOSE/TREATMENT)
     Route: 058
     Dates: start: 202208
  2. TESTOPEL [Suspect]
     Active Substance: TESTOSTERONE
     Indication: Blood testosterone decreased
     Dosage: UNK UNKNOWN, UNKNOWN (FIRST DOSE/TREATMENT)
     Route: 058
     Dates: start: 202208
  3. TESTOPEL [Suspect]
     Active Substance: TESTOSTERONE
     Dosage: UNK UNKNOWN, UNKNOWN (SECOND TREATMENT)
     Route: 058
     Dates: start: 20221209
  4. TESTOPEL [Suspect]
     Active Substance: TESTOSTERONE
     Dosage: UNK UNKNOWN, UNKNOWN (SECOND TREATMENT)
     Route: 058
     Dates: start: 20221209

REACTIONS (4)
  - Anaphylactic reaction [Not Recovered/Not Resolved]
  - Eye haemorrhage [Unknown]
  - Implant site pain [Recovering/Resolving]
  - Inflammation [Recovering/Resolving]

NARRATIVE: CASE EVENT DATE: 20220101
